FAERS Safety Report 11743864 (Version 1)
Quarter: 2015Q4

REPORT INFORMATION
  Report Type: Spontaneous
  Country: US (occurrence: US)
  Receive Date: 20151116
  Receipt Date: 20151116
  Transmission Date: 20160304
  Serious: No
  Sender: FDA-Public Use
  Company Number: US-GALDERMA-US14004649

PATIENT
  Age: 65 Year
  Sex: Female

DRUGS (6)
  1. CALCIPOTRIENE LIQUID (GLOBAL PHARMACEUTICALS) [Suspect]
     Active Substance: CALCIPOTRIENE HYDRATE
     Indication: PSORIASIS
     Dosage: 0.05%
     Route: 061
  2. CLOBETASOL [Suspect]
     Active Substance: CLOBETASOL
     Indication: PSORIASIS
     Dosage: 3 MCG
     Route: 061
     Dates: end: 201408
  3. SELSUN BLUE THE ANTI-DANDRUFF SHAMPOO [Concomitant]
     Indication: THERAPEUTIC SKIN CARE TOPICAL
     Route: 061
  4. CLOBETASOL [Suspect]
     Active Substance: CLOBETASOL
     Indication: PSORIASIS
     Dosage: 0.05 MG
     Route: 061
     Dates: end: 201406
  5. CLOBEX [Suspect]
     Active Substance: CLOBETASOL PROPIONATE
     Indication: PSORIASIS
     Dosage: 0.05%
     Route: 061
     Dates: start: 20141208, end: 20141209
  6. CALCIPOTRIENE LIQUID (GLOBAL PHARMACEUTICALS) [Suspect]
     Active Substance: CALCIPOTRIENE HYDRATE
     Indication: PSORIASIS
     Dosage: 0.005%
     Route: 061
     Dates: end: 20141207

REACTIONS (1)
  - Seborrhoea [Not Recovered/Not Resolved]

NARRATIVE: CASE EVENT DATE: 20141208
